FAERS Safety Report 24083478 (Version 1)
Quarter: 2024Q3

REPORT INFORMATION
  Report Type: Spontaneous
  Country: DE (occurrence: DE)
  Receive Date: 20240712
  Receipt Date: 20240712
  Transmission Date: 20241017
  Serious: Yes (Other)
  Sender: Unknown Manufacturer
  Company Number: DE-EMBRYOTOX-202309591

PATIENT
  Sex: Female
  Weight: 3.58 kg

DRUGS (5)
  1. LEVETIRACETAM [Suspect]
     Active Substance: LEVETIRACETAM
     Indication: Epilepsy
     Dosage: 3000 [MG/D ]/ INITIALLY 2500 MG/D (2X1250), FROM GW 27 3000 MG/D (2X1500)
     Route: 064
     Dates: start: 20230518, end: 20240223
  2. BOOSTRIX POLIO [Concomitant]
     Active Substance: DIPHTHERIA AND TETANUS TOXOIDS AND ACELLULAR PERTUSSIS ADSORBED AND INACTIVATED POLIOVIRUS VACCINE
     Indication: Immunisation
     Route: 064
     Dates: start: 20240104, end: 20240104
  3. CALCITRIOL [Concomitant]
     Active Substance: CALCITRIOL
     Indication: Blood calcium decreased
     Dosage: 0.25 [MG/D ]
     Route: 064
     Dates: start: 20230518, end: 20240223
  4. CALCIUM [Concomitant]
     Active Substance: CALCIUM
     Indication: Blood calcium decreased
     Dosage: 1800 [MG/D ] 3 SEPARATED DOSES
     Route: 064
     Dates: start: 20230518, end: 20240223
  5. LEVOTHYROXINE SODIUM [Concomitant]
     Active Substance: LEVOTHYROXINE SODIUM
     Indication: Thyroid hormone replacement therapy
     Dosage: 125 [G/D ]/ INITIALYL 100 G/D, INCREASED TO 125 G/D IN THE COURSE OF PREGNANCY
     Route: 064
     Dates: start: 20230518, end: 20240223

REACTIONS (2)
  - Feeling jittery [Recovering/Resolving]
  - Foetal exposure during pregnancy [Unknown]

NARRATIVE: CASE EVENT DATE: 20240201
